FAERS Safety Report 9098070 (Version 1)
Quarter: 2013Q1

REPORT INFORMATION
  Report Type: Spontaneous
  Country: US (occurrence: US)
  Receive Date: 20130213
  Receipt Date: 20130213
  Transmission Date: 20140127
  Serious: Yes (Hospitalization, Other)
  Sender: FDA-Public Use
  Company Number: US-UCBSA-075831

PATIENT
  Age: 64 Year
  Sex: Female

DRUGS (7)
  1. XYREM [Suspect]
     Indication: RAPID EYE MOVEMENTS SLEEP ABNORMAL
     Route: 048
     Dates: start: 20030723
  2. XYREM [Suspect]
     Indication: SOMNOLENCE
     Route: 048
     Dates: start: 20030723
  3. XYREM [Suspect]
     Indication: RAPID EYE MOVEMENTS SLEEP ABNORMAL
     Dosage: NIGHTLY
     Route: 048
     Dates: start: 20030701, end: 200307
  4. XYREM [Suspect]
     Indication: SOMNOLENCE
     Dosage: NIGHTLY
     Route: 048
     Dates: start: 20030701, end: 200307
  5. ALPRAZOLAM [Suspect]
     Dosage: UNKNOWN DOSE
  6. BACLOFEN [Suspect]
  7. BENADRYL [Suspect]

REACTIONS (13)
  - Toxic encephalopathy [Unknown]
  - Delirium [Recovered/Resolved]
  - Toxicity to various agents [Not Recovered/Not Resolved]
  - Withdrawal syndrome [Recovered/Resolved]
  - Adverse drug reaction [Recovered/Resolved]
  - Vomiting [Not Recovered/Not Resolved]
  - Dyskinesia [Not Recovered/Not Resolved]
  - Musculoskeletal stiffness [Not Recovered/Not Resolved]
  - Hypoxia [Not Recovered/Not Resolved]
  - Stress [Not Recovered/Not Resolved]
  - Metabolic disorder [Not Recovered/Not Resolved]
  - Tremor [Not Recovered/Not Resolved]
  - Pain [Not Recovered/Not Resolved]
